FAERS Safety Report 8972363 (Version 2)
Quarter: 2013Q1

REPORT INFORMATION
  Report Type: Spontaneous
  Country: GB (occurrence: GB)
  Receive Date: 20121219
  Receipt Date: 20130109
  Transmission Date: 20140127
  Serious: Yes (Other)
  Sender: FDA-Public Use
  Company Number: GB-PFIZER INC-2012318236

PATIENT
  Age: 44 Year
  Sex: Female

DRUGS (1)
  1. LYRICA [Suspect]
     Dosage: 400 MG, DAILY
     Route: 048

REACTIONS (3)
  - Surgery [Unknown]
  - Gastric bypass [Unknown]
  - Dysphagia [Unknown]
